APPROVED DRUG PRODUCT: ROSIGLITAZONE MALEATE AND METFORMIN HYDROCHLORIDE
Active Ingredient: METFORMIN HYDROCHLORIDE; ROSIGLITAZONE MALEATE
Strength: 1GM;EQ 4MG BASE
Dosage Form/Route: TABLET;ORAL
Application: A077337 | Product #004
Applicant: TEVA PHARMACEUTICALS USA INC
Approved: May 7, 2014 | RLD: No | RS: No | Type: DISCN